FAERS Safety Report 4655246-4 (Version None)
Quarter: 2005Q2

REPORT INFORMATION
  Report Type: 
  Country: None (occurrence: None)
  Receive Date: 20050506
  Receipt Date: 20050428
  Transmission Date: 20051028
  Serious: Yes (Death)
  Sender: FDA-Public Use
  Company Number: JP-GLAXOSMITHKLINE-B0380016A

PATIENT

DRUGS (1)
  1. PAROXETINE [Suspect]
     Route: 065

REACTIONS (1)
  - COMPLETED SUICIDE [None]
